FAERS Safety Report 14301556 (Version 1)
Quarter: 2017Q4

REPORT INFORMATION
  Report Type: Report from Study
  Country: None (occurrence: ES)
  Receive Date: 20171219
  Receipt Date: 20171219
  Transmission Date: 20180321
  Serious: Yes (Other)
  Sender: FDA-Public Use
  Company Number: ES-BIOVITRUM-2017ES1179

PATIENT
  Age: 75 Year
  Sex: Female

DRUGS (5)
  1. KINERET [Suspect]
     Active Substance: ANAKINRA
     Indication: SCHNITZLER^S SYNDROME
     Route: 058
     Dates: start: 201506
  2. OMEPRAZOL (2141A) [Concomitant]
     Indication: GASTRITIS PROPHYLAXIS
     Route: 048
  3. LORMETAZEPAM (88A) [Concomitant]
     Route: 048
  4. VENLAFAXINA (2664A) [Concomitant]
     Indication: DEPRESSION
     Route: 048
     Dates: start: 2010
  5. PREDNISONA (886A) [Concomitant]
     Indication: SCHNITZLER^S SYNDROME
     Route: 048

REACTIONS (1)
  - Psoriasis [Not Recovered/Not Resolved]

NARRATIVE: CASE EVENT DATE: 201512
